FAERS Safety Report 12631187 (Version 2)
Quarter: 2016Q3

REPORT INFORMATION
  Report Type: Spontaneous
  Country: US (occurrence: US)
  Receive Date: 20160808
  Receipt Date: 20160808
  Transmission Date: 20161109
  Serious: No
  Sender: FDA-Public Use
  Company Number: US-BEH-2015052659

PATIENT
  Sex: Male
  Weight: 76 kg

DRUGS (15)
  1. DIPHENHYDRAMINE. [Concomitant]
     Active Substance: DIPHENHYDRAMINE
  2. TRAZODONE [Concomitant]
     Active Substance: TRAZODONE HYDROCHLORIDE
  3. HIZENTRA [Suspect]
     Active Substance: HUMAN IMMUNOGLOBULIN G
     Route: 058
  4. RISPERDAL [Concomitant]
     Active Substance: RISPERIDONE
  5. PULMICORT TURBUHALER [Concomitant]
     Active Substance: BUDESONIDE
  6. LIDOCAINE. [Concomitant]
     Active Substance: LIDOCAINE
  7. LUVOX [Concomitant]
     Active Substance: FLUVOXAMINE MALEATE
  8. HIZENTRA [Suspect]
     Active Substance: HUMAN IMMUNOGLOBULIN G
     Route: 058
  9. CHILDS TYLENOL [Concomitant]
  10. EPIPEN [Concomitant]
     Active Substance: EPINEPHRINE
  11. CLINDAMYCIN [Concomitant]
     Active Substance: CLINDAMYCIN\CLINDAMYCIN PHOSPHATE
  12. TOPIRAMATE. [Concomitant]
     Active Substance: TOPIRAMATE
  13. ABILIFY [Concomitant]
     Active Substance: ARIPIPRAZOLE
  14. HIZENTRA [Suspect]
     Active Substance: HUMAN IMMUNOGLOBULIN G
     Indication: IMMUNODEFICIENCY COMMON VARIABLE
     Route: 058
  15. FLINTSTONES [Concomitant]

REACTIONS (1)
  - Alopecia [Unknown]
